FAERS Safety Report 17702484 (Version 1)
Quarter: 2020Q2

REPORT INFORMATION
  Report Type: Report from Study
  Country: CA (occurrence: CA)
  Receive Date: 20200423
  Receipt Date: 20200423
  Transmission Date: 20200714
  Serious: Yes (Other)
  Sender: FDA-Public Use
  Company Number: CA-BRISTOL-MYERS SQUIBB COMPANY-BMS-2018-009859

PATIENT
  Age: 69 Year
  Sex: Female

DRUGS (1)
  1. ABATACEPT [Suspect]
     Active Substance: ABATACEPT
     Indication: RHEUMATOID ARTHRITIS
     Dosage: 750 MG, Q4WK
     Route: 042
     Dates: start: 20110919

REACTIONS (17)
  - Pharyngitis [Unknown]
  - Influenza [Unknown]
  - Infusion site discomfort [Unknown]
  - Cough [Recovering/Resolving]
  - Pain in extremity [Recovering/Resolving]
  - Lymphadenopathy [Unknown]
  - Bronchitis [Recovering/Resolving]
  - Chest discomfort [Unknown]
  - Contusion [Unknown]
  - Back pain [Unknown]
  - Musculoskeletal pain [Unknown]
  - Infusion site pain [Unknown]
  - Infusion site erythema [Unknown]
  - Pain [Unknown]
  - Headache [Unknown]
  - Productive cough [Unknown]
  - Nasopharyngitis [Unknown]

NARRATIVE: CASE EVENT DATE: 20180912
